FAERS Safety Report 22814978 (Version 3)
Quarter: 2023Q4

REPORT INFORMATION
  Report Type: Other
  Country: FR (occurrence: FR)
  Receive Date: 20230811
  Receipt Date: 20231006
  Transmission Date: 20240110
  Serious: Yes (Other)
  Sender: FDA-Public Use
  Company Number: FR-INCYTE CORPORATION-2023IN008189

PATIENT

DRUGS (8)
  1. TAFASITAMAB [Suspect]
     Active Substance: TAFASITAMAB
     Indication: Diffuse large B-cell lymphoma
     Dosage: 12 MILLIGRAM/KILOGRAM, C1D1-D8-D15-D22
     Route: 065
     Dates: start: 20220912
  2. TAFASITAMAB [Suspect]
     Active Substance: TAFASITAMAB
     Dosage: 680 MILLIGRAM, C1D4
     Route: 065
  3. TAFASITAMAB [Suspect]
     Active Substance: TAFASITAMAB
     Dosage: 760 MILLIGRAM, C1D8-C7D1
     Route: 065
  4. TAFASITAMAB [Suspect]
     Active Substance: TAFASITAMAB
     Dosage: 800 MILLIGRAM, C7D15-C9D1
     Route: 065
  5. TAFASITAMAB [Suspect]
     Active Substance: TAFASITAMAB
     Dosage: 600 MILLIGRAM
     Route: 065
     Dates: start: 20230728
  6. REVLIMID [Suspect]
     Active Substance: LENALIDOMIDE
     Indication: Diffuse large B-cell lymphoma
     Dosage: UNK
     Route: 065
  7. KARDEGIC [Concomitant]
     Active Substance: ASPIRIN DL-LYSINE
     Indication: Prophylaxis
     Dosage: UNK
     Route: 065
     Dates: start: 20170101
  8. ATORVASTATIN [Concomitant]
     Active Substance: ATORVASTATIN
     Indication: Dyslipidaemia
     Dosage: UNK
     Route: 065
     Dates: start: 20170101

REACTIONS (1)
  - Cytopenia [Recovered/Resolved]
